FAERS Safety Report 8360665-9 (Version None)
Quarter: 2012Q2

REPORT INFORMATION
  Report Type: 
  Country: None (occurrence: None)
  Receive Date: 20120515
  Receipt Date: 20120507
  Transmission Date: 20120825
  Serious: Yes (Other)
  Sender: FDA-Public Use
  Company Number: US-PFIZER INC-2012112103

PATIENT
  Age: 59 Year
  Sex: Female

DRUGS (6)
  1. TOPIRAMATE [Suspect]
     Dosage: UNK
  2. GABAPENTIN [Suspect]
     Dosage: UNK
  3. PREDNISONE TAB [Suspect]
     Dosage: 60 MG, UNK
  4. PHENYTOIN [Suspect]
     Dosage: UNK
  5. LACOSAMIDE [Suspect]
     Dosage: UNK
  6. LEVETIRACETAM [Suspect]
     Dosage: UNK

REACTIONS (2)
  - STATUS EPILEPTICUS [None]
  - CONVULSION [None]
